FAERS Safety Report 9008814 (Version 1)
Quarter: 2013Q1

REPORT INFORMATION
  Report Type: Spontaneous
  Country: US (occurrence: US)
  Receive Date: 20130111
  Receipt Date: 20130111
  Transmission Date: 20140127
  Serious: Yes (Other)
  Sender: FDA-Public Use
  Company Number: US-FRI-1000041535

PATIENT
  Sex: Male

DRUGS (1)
  1. DALIRESP [Suspect]

REACTIONS (1)
  - Delirium [Recovered/Resolved]
